FAERS Safety Report 24575732 (Version 1)
Quarter: 2024Q4

REPORT INFORMATION
  Report Type: Report from Study
  Country: BR (occurrence: BR)
  Receive Date: 20241104
  Receipt Date: 20241104
  Transmission Date: 20250115
  Serious: Yes (Hospitalization, Other)
  Sender: ORGANON
  Company Number: BR-ORGANON-O2410BRA002736

PATIENT
  Sex: Female
  Weight: 57 kg

DRUGS (1)
  1. ETONOGESTREL [Suspect]
     Active Substance: ETONOGESTREL
     Dosage: 1 IMPLANT
     Route: 059
     Dates: start: 20220402

REACTIONS (5)
  - Central nervous system vasculitis [Unknown]
  - Acne [Unknown]
  - Seborrhoea [Unknown]
  - Libido decreased [Unknown]
  - Vaginal discharge [Unknown]
